FAERS Safety Report 4307064-4 (Version None)
Quarter: 2004Q1

REPORT INFORMATION
  Report Type: 
  Country: None (occurrence: None)
  Receive Date: 20040224
  Receipt Date: 20040206
  Transmission Date: 20041129
  Serious: Yes (Other)
  Sender: FDA-Public Use
  Company Number: 234660

PATIENT
  Age: 63 Year
  Sex: Male

DRUGS (10)
  1. NOVOLOG MIX 70/30 [Suspect]
     Indication: INSULIN-REQUIRING TYPE II DIABETES MELLITUS
     Dosage: 12 IU, BID, SUBSUTANEOUS
     Route: 058
     Dates: start: 20030401, end: 20031201
  2. NOVOLOG MIX 70/30 [Suspect]
     Indication: INSULIN-REQUIRING TYPE II DIABETES MELLITUS
     Dosage: 12 IU, BID, SUBSUTANEOUS
     Route: 058
     Dates: start: 20031223, end: 20040107
  3. LOTENSIN (BENZEPHIL HYDROCHLORIDE) [Concomitant]
  4. BD ULTRAFINE NEEDLES [Concomitant]
  5. HYDROCHLOROTHIAZIDE [Concomitant]
  6. PLAVIX [Concomitant]
  7. ASPIRIN [Concomitant]
  8. ZOLOFT [Concomitant]
  9. ZOCOR [Concomitant]
  10. GYLBURIDE [Concomitant]

REACTIONS (5)
  - BURNING SENSATION [None]
  - DYSPNOEA [None]
  - PRURITUS GENERALISED [None]
  - RASH GENERALISED [None]
  - SWELLING [None]
